FAERS Safety Report 8683021 (Version 2)
Quarter: 2013Q2

REPORT INFORMATION
  Report Type: Spontaneous
  Country: None (occurrence: None)
  Receive Date: 20120410
  Receipt Date: 20130410
  Transmission Date: 20140414
  Serious: Yes (Disabling, Other)
  Sender: FDA-Public Use
  Company Number: AUR-APL-2012-01040

PATIENT
  Sex: 0

DRUGS (3)
  1. LISINOPRIL (LISINOPRIL) [Suspect]
     Indication: PRODUCT USED FOR UNKNOWN INDICATION
     Dosage: 10 MG,
     Route: 048
     Dates: start: 2007, end: 20110803
  2. HYDROCHLOROTHIAZIDE (HYDROCHLOROTHIAZIDE) [Concomitant]
  3. ACETYLSALICYLIC ACID (ACETYLSALICYLIC ACID) [Concomitant]

REACTIONS (1)
  - ARTHRALGIA [None]
